FAERS Safety Report 23460895 (Version 1)
Quarter: 2024Q1

REPORT INFORMATION
  Report Type: Spontaneous
  Country: US (occurrence: US)
  Receive Date: 20240131
  Receipt Date: 20240131
  Transmission Date: 20240409
  Serious: No
  Sender: FDA-Public Use
  Company Number: US-AMNEAL PHARMACEUTICALS-2023-AMRX-01939

PATIENT
  Sex: Female
  Weight: 140 kg

DRUGS (1)
  1. ELURYNG [Suspect]
     Active Substance: ETHINYL ESTRADIOL\ETONOGESTREL
     Indication: Product used for unknown indication
     Dosage: UNK
     Route: 067

REACTIONS (7)
  - Panic attack [Unknown]
  - Medical device site laceration [Not Recovered/Not Resolved]
  - Application site discomfort [Not Recovered/Not Resolved]
  - Medical device site pain [Not Recovered/Not Resolved]
  - Vulvovaginal injury [Unknown]
  - Device breakage [Unknown]
  - Anxiety [Unknown]
